FAERS Safety Report 5257790-8 (Version None)
Quarter: 2007Q1

REPORT INFORMATION
  Report Type: 
  Country: None (occurrence: None)
  Receive Date: 20070307
  Receipt Date: 20070301
  Transmission Date: 20070707
  Serious: Yes (Other)
  Sender: FDA-Public Use
  Company Number: 2007UW03934

PATIENT
  Age: 44 Year
  Sex: Female

DRUGS (2)
  1. LISINOPRIL [Suspect]
     Route: 048
  2. KEPPRA [Concomitant]

REACTIONS (2)
  - CONVULSION [None]
  - DRUG INEFFECTIVE [None]
